FAERS Safety Report 23502814 (Version 1)
Quarter: 2024Q1

REPORT INFORMATION
  Report Type: Spontaneous
  Country: US (occurrence: US)
  Receive Date: 20240208
  Receipt Date: 20240208
  Transmission Date: 20240409
  Serious: No
  Sender: FDA-Public Use
  Company Number: US-INTRA-CELLULAR THERAPIES, INC.-2023ICT01084

PATIENT
  Sex: Female

DRUGS (1)
  1. CAPLYTA [Suspect]
     Active Substance: LUMATEPERONE
     Indication: Bipolar disorder
     Dosage: 42 MG, 1X/DAY IN THE EVENING
     Route: 048
     Dates: start: 20230728, end: 20230728

REACTIONS (2)
  - Vomiting [Unknown]
  - Akathisia [Unknown]

NARRATIVE: CASE EVENT DATE: 20230701
